FAERS Safety Report 24641560 (Version 1)
Quarter: 2024Q4

REPORT INFORMATION
  Report Type: Spontaneous
  Country: GB (occurrence: GB)
  Receive Date: 20241120
  Receipt Date: 20241120
  Transmission Date: 20250115
  Serious: Yes (Other)
  Sender: MYLAN
  Company Number: GB-MHRA-TPP25748769C9823503YC1731004048274

PATIENT
  Age: 96 Year
  Sex: Female
  Weight: 47 kg

DRUGS (18)
  1. MIRTAZAPINE [Suspect]
     Active Substance: MIRTAZAPINE
     Indication: Ill-defined disorder
     Dosage: 15 MILLIGRAM, PM (TAKE ONE AT BEDTIME)
     Route: 065
     Dates: start: 20241031
  2. PANTOPRAZOLE [Concomitant]
     Active Substance: PANTOPRAZOLE
     Indication: Ill-defined disorder
     Dosage: 1 DOSAGE FORM, QD (TAKE 1 DAILY)
     Route: 065
     Dates: start: 20240816
  3. FELODIPINE [Concomitant]
     Active Substance: FELODIPINE
     Indication: Ill-defined disorder
     Dosage: 1 DOSAGE FORM, QD (TAKE ONE DAILY - INTERIM)
     Route: 065
     Dates: start: 20240711
  4. DOXYCYCLINE [Concomitant]
     Active Substance: DOXYCYCLINE
     Indication: Ill-defined disorder
     Dosage: 1 DOSAGE FORM, QD (TAKE 1 DAILY FOR 8 DAYS - DO NOT TAKE WITH GAVI)
     Route: 065
     Dates: start: 20241024, end: 20241101
  5. ACETAMINOPHEN [Concomitant]
     Active Substance: ACETAMINOPHEN
     Indication: Ill-defined disorder
     Dosage: 2 DOSAGE FORM, QID (TAKE TWO TABLET UP TO 4 TIMES WHEN REQUIRED FOR)
     Route: 065
     Dates: start: 20240307
  6. HYDRAMED NIGHT [Concomitant]
     Indication: Ill-defined disorder
     Dosage: INSTILL AT NIGHT TO DRY EYE(S) WHEN REQUIRED
     Route: 047
     Dates: start: 20240321
  7. HYDRAMED NIGHT [Concomitant]
     Indication: Dry eye
  8. HYDROXOCOBALAMIN [Concomitant]
     Active Substance: HYDROXOCOBALAMIN
     Indication: Ill-defined disorder
     Dosage: 1 DOSAGE FORM, Q3MONTHS
     Route: 030
     Dates: start: 20240321
  9. Aapromel [Concomitant]
     Indication: Ill-defined disorder
     Dosage: 1 DOSAGE FORM, PRN
     Route: 047
     Dates: start: 20240321
  10. Aapromel [Concomitant]
     Indication: Dry eye
  11. GAVISCON [Concomitant]
     Active Substance: ALUMINUM HYDROXIDE\MAGNESIUM CARBONATE
     Indication: Ill-defined disorder
     Dosage: 5 MILLILITER, PRN (TAKE 5ML TWICE DAILY AS REQUIRED)
     Route: 065
     Dates: start: 20240605
  12. BUPRENORPHINE [Concomitant]
     Active Substance: BUPRENORPHINE
     Indication: Ill-defined disorder
     Dosage: 1 DOSAGE FORM, QW (APPLY ONE WEEKLY)
     Route: 065
     Dates: start: 20240618
  13. RAMIPRIL [Concomitant]
     Active Substance: RAMIPRIL
     Indication: Ill-defined disorder
     Dosage: 1 DOSAGE FORM, QD (TAKE ONE DAILY)
     Route: 065
     Dates: start: 20240621
  14. MINERAL OIL\PARAFFIN [Concomitant]
     Active Substance: MINERAL OIL\PARAFFIN
     Indication: Ill-defined disorder
     Dosage: USE AS DIRECTED
     Route: 065
     Dates: start: 20240704
  15. POLYETHYLENE GLYCOL 3350\POTASSIUM CHLORIDE\SODIUM BICARBONATE\SODIUM [Concomitant]
     Active Substance: POLYETHYLENE GLYCOL 3350\POTASSIUM CHLORIDE\SODIUM BICARBONATE\SODIUM CHLORIDE
     Indication: Ill-defined disorder
     Dosage: 1 DOSAGE FORM, PRN (TAKE 1 SACHET DAILY. WHEN REQUIRED)
     Route: 065
     Dates: start: 20240725
  16. PROLIA [Concomitant]
     Active Substance: DENOSUMAB
     Indication: Ill-defined disorder
     Dosage: 1 DOSAGE FORM (ONCE EVERY 6 MONTHS)
     Route: 065
     Dates: start: 20240729
  17. LACTULOSE [Concomitant]
     Active Substance: LACTULOSE
     Indication: Ill-defined disorder
     Dosage: TAKE 15MLS TWICE DAILY WHEN REQUIRED
     Route: 065
     Dates: start: 20240801
  18. LANSOPRAZOLE [Concomitant]
     Active Substance: LANSOPRAZOLE
     Indication: Ill-defined disorder
     Dosage: 1 DOSAGE FORM, QD (TAKE ONE ONCE DAILY)
     Route: 065
     Dates: start: 20240809, end: 20240816

REACTIONS (2)
  - Somnolence [Unknown]
  - Feeling abnormal [Unknown]

NARRATIVE: CASE EVENT DATE: 20241101
